FAERS Safety Report 5016020-2 (Version None)
Quarter: 2006Q2

REPORT INFORMATION
  Report Type: 
  Country: None (occurrence: None)
  Receive Date: 20060531
  Receipt Date: 20060531
  Transmission Date: 20061013
  Serious: Yes (Life-Threatening)
  Sender: FDA-Public Use
  Company Number: None

PATIENT
  Sex: Female

DRUGS (3)
  1. OMNISCAN [Suspect]
     Indication: PERIPHERAL ARTERY ANEURYSM
  2. OMNISCAN [Suspect]
     Indication: RENAL MASS
  3. OPTIMARK [Suspect]
     Indication: NEOPLASM MALIGNANT

REACTIONS (3)
  - MUSCULOSKELETAL STIFFNESS [None]
  - NEPHROGENIC FIBROSING DERMOPATHY [None]
  - SEPSIS [None]
